FAERS Safety Report 4424529-5 (Version None)
Quarter: 2004Q3

REPORT INFORMATION
  Report Type: 
  Country: None (occurrence: None)
  Receive Date: 20040812
  Receipt Date: 20040806
  Transmission Date: 20050211
  Serious: Yes (Hospitalization)
  Sender: FDA-Public Use
  Company Number: ES-ROCHE-376948

PATIENT
  Age: 66 Year
  Sex: Female
  Weight: 55 kg

DRUGS (3)
  1. VALIUM [Suspect]
     Indication: DRUG USE FOR UNKNOWN INDICATION
     Route: 030
     Dates: start: 20040611, end: 20040611
  2. LIDOCAINE HCL [Suspect]
     Indication: DRUG USE FOR UNKNOWN INDICATION
     Route: 045
     Dates: start: 20040611, end: 20040611
  3. ATROPINA [Suspect]
     Indication: DRUG USE FOR UNKNOWN INDICATION
     Route: 030
     Dates: start: 20040611, end: 20040611

REACTIONS (5)
  - AGITATION [None]
  - DISCOMFORT [None]
  - HYPOTONIA [None]
  - MIOSIS [None]
  - VISUAL DISTURBANCE [None]
